FAERS Safety Report 7394359-3 (Version None)
Quarter: 2011Q2

REPORT INFORMATION
  Report Type: 
  Country: None (occurrence: None)
  Receive Date: 20110405
  Receipt Date: 20110401
  Transmission Date: 20111010
  Serious: Yes (Hospitalization)
  Sender: FDA-Public Use
  Company Number: CH-ROCHE-762156

PATIENT
  Sex: Female
  Weight: 63 kg

DRUGS (10)
  1. FOSAMAX [Suspect]
     Route: 048
     Dates: start: 20000701, end: 20061101
  2. CIMIFEMIN [Concomitant]
     Indication: MENOPAUSAL DISORDER
     Route: 048
  3. TENORMIN [Concomitant]
     Indication: ESSENTIAL HYPERTENSION
     Route: 048
  4. CALCIMAGON-D3 [Concomitant]
     Route: 048
  5. MODURETIC 5-50 [Concomitant]
     Indication: ESSENTIAL HYPERTENSION
     Route: 048
  6. LIMBITROL [Concomitant]
     Route: 048
  7. LEXOTANIL [Concomitant]
     Route: 048
  8. VOLTAFLEX [Concomitant]
     Route: 048
  9. CONDROSULF [Concomitant]
     Route: 048
  10. BONIVA [Suspect]
     Route: 048
     Dates: start: 20061101, end: 20110220

REACTIONS (1)
  - LOWER LIMB FRACTURE [None]
